FAERS Safety Report 8102708-3 (Version None)
Quarter: 2012Q1

REPORT INFORMATION
  Report Type: 
  Country: None (occurrence: None)
  Receive Date: 20120201
  Receipt Date: 20120120
  Transmission Date: 20120608
  Serious: Yes (Hospitalization, Other)
  Sender: FDA-Public Use
  Company Number: US-MYLANLABS-2012S1001723

PATIENT
  Age: 45 Year
  Sex: Male

DRUGS (8)
  1. CARVEDILOL [Concomitant]
  2. LISINOPRIL [Concomitant]
  3. CLOZAPINE [Suspect]
     Indication: SCHIZOPHRENIA, PARANOID TYPE
     Route: 048
  4. THIAZIDE DERIVATIVES [Concomitant]
  5. OLANZAPINE [Concomitant]
  6. CHLORTHALIDONE [Suspect]
  7. METFORMIN HCL [Concomitant]
  8. SIMVASTATIN [Concomitant]

REACTIONS (1)
  - RENAL FAILURE ACUTE [None]
